FAERS Safety Report 8862537 (Version 1)
Quarter: 2012Q4

REPORT INFORMATION
  Report Type: 
  Country: US (occurrence: US)
  Receive Date: 20121026
  Receipt Date: 20121026
  Transmission Date: 20130627
  Serious: Yes (Other)
  Sender: FDA-Public Use
  Company Number: US-PFIZER INC-2012264960

PATIENT
  Sex: Female

DRUGS (2)
  1. ENBREL [Suspect]
     Indication: RHEUMATOID ARTHRITIS
     Dosage: UNK
     Dates: start: 20000901
  2. METHOTREXATE SODIUM [Suspect]
     Dosage: UNK

REACTIONS (2)
  - Rectal haemorrhage [Unknown]
  - Breast cancer [Unknown]
